FAERS Safety Report 7247801-2 (Version None)
Quarter: 2011Q1

REPORT INFORMATION
  Report Type: 
  Country: None (occurrence: None)
  Receive Date: 20110127
  Receipt Date: 20110119
  Transmission Date: 20110831
  Serious: Yes (Death, Other)
  Sender: FDA-Public Use
  Company Number: DE-GENZYME-FLUD-1000661

PATIENT
  Age: 26 Year
  Sex: Male

DRUGS (12)
  1. TRIMETHOPRIM + SULFAMETHOXAZOLE [Concomitant]
     Indication: INFECTION PROPHYLAXIS
  2. FLUCONAZOLE [Concomitant]
     Indication: INFECTION PROPHYLAXIS
  3. CORTICOSTEROID NOS [Concomitant]
     Indication: ACUTE GRAFT VERSUS HOST DISEASE
  4. MTX [Concomitant]
     Indication: PROPHYLAXIS AGAINST GRAFT VERSUS HOST DISEASE
  5. CAMPATH [Suspect]
     Dosage: 20 MG, EVERY 2 - 3 WEEKS
     Route: 042
  6. 03-OKT [Suspect]
     Indication: STEM CELL TRANSPLANT
     Dosage: UNK
     Route: 065
  7. TACROLIMUS [Concomitant]
     Indication: ACUTE GRAFT VERSUS HOST DISEASE
  8. CAMPATH [Suspect]
     Indication: ACUTE GRAFT VERSUS HOST DISEASE
     Dosage: UNK
     Route: 042
  9. CYCLOPHOSPHAMIDE [Suspect]
     Indication: STEM CELL TRANSPLANT
     Dosage: UNK
     Route: 065
  10. ACICLOVIR [Concomitant]
     Indication: INFECTION PROPHYLAXIS
  11. CYCLOSPORINE [Concomitant]
     Indication: PROPHYLAXIS AGAINST GRAFT VERSUS HOST DISEASE
  12. FLUDARA [Suspect]
     Indication: STEM CELL TRANSPLANT
     Dosage: UNK
     Route: 065

REACTIONS (5)
  - BACTERIAL SEPSIS [None]
  - PYREXIA [None]
  - CHRONIC GRAFT VERSUS HOST DISEASE [None]
  - DEATH [None]
  - ACUTE GRAFT VERSUS HOST DISEASE [None]
